FAERS Safety Report 8855866 (Version 1)
Quarter: 2012Q4

REPORT INFORMATION
  Report Type: Spontaneous
  Country: US (occurrence: None)
  Receive Date: 20121022
  Receipt Date: 20121022
  Transmission Date: 20130627
  Serious: Yes (Life-Threatening)
  Sender: FDA-Public Use
  Company Number: None

PATIENT
  Age: 77 Year
  Sex: Female
  Weight: 137 kg

DRUGS (2)
  1. RECLAST [Suspect]
     Indication: BONE LOSS
     Dates: start: 20120914, end: 20120914
  2. RECLAST [Suspect]
     Indication: PROPHYLAXIS
     Dates: start: 20120914, end: 20120914

REACTIONS (3)
  - Renal failure acute [None]
  - Renal failure [None]
  - Dialysis [None]
